FAERS Safety Report 11452009 (Version 1)
Quarter: 2015Q3

REPORT INFORMATION
  Report Type: Spontaneous
  Country: US (occurrence: None)
  Receive Date: 20150902
  Receipt Date: 20150902
  Transmission Date: 20151125
  Serious: No
  Sender: FDA-Public Use
  Company Number: None

PATIENT
  Age: 77 Year
  Sex: Female

DRUGS (1)
  1. IBRANCE [Suspect]
     Active Substance: PALBOCICLIB
     Indication: MALIGNANT PERITONEAL NEOPLASM
     Route: 048
     Dates: start: 20150611

REACTIONS (2)
  - Feeding disorder [None]
  - Vomiting [None]
